FAERS Safety Report 5906161-7 (Version None)
Quarter: 2008Q4

REPORT INFORMATION
  Report Type: 
  Country: None (occurrence: None)
  Receive Date: 20081002
  Receipt Date: 20080923
  Transmission Date: 20090506
  Serious: Yes (Other)
  Sender: FDA-Public Use
  Company Number: GB-ASTRAZENECA-2008GB01813

PATIENT
  Age: 81 Year
  Sex: Male

DRUGS (7)
  1. SEROQUEL [Suspect]
     Indication: DEMENTIA
     Route: 048
  2. SEROQUEL [Suspect]
     Indication: AGITATION
     Route: 048
  3. SEROQUEL [Suspect]
     Indication: AGGRESSION
     Route: 048
  4. SEROQUEL [Suspect]
     Dosage: REDUCED GRADUALLY AFTER ONSET TO 25 MG
     Route: 048
     Dates: end: 20080915
  5. SEROQUEL [Suspect]
     Dosage: REDUCED GRADUALLY AFTER ONSET TO 25 MG
     Route: 048
     Dates: end: 20080915
  6. SEROQUEL [Suspect]
     Dosage: REDUCED GRADUALLY AFTER ONSET TO 25 MG
     Route: 048
     Dates: end: 20080915
  7. CHLORPROMAZINE [Concomitant]
     Indication: AGITATION
     Dosage: 25 MG TWICE DAILY AND 25 MG AT NIGHT

REACTIONS (1)
  - HEPATITIS [None]
